FAERS Safety Report 9512496 (Version 7)
Quarter: 2014Q2

REPORT INFORMATION
  Report Type: Report from Study
  Country: BR (occurrence: BR)
  Receive Date: 20130910
  Receipt Date: 20140521
  Transmission Date: 20141212
  Serious: Yes (Other)
  Sender: FDA-Public Use
  Company Number: BR-PFIZER INC-2013251954

PATIENT
  Age: 62 Year
  Sex: Female
  Weight: 99.1 kg

DRUGS (7)
  1. TOFACITINIB CITRATE [Suspect]
     Indication: RHEUMATOID ARTHRITIS
     Dosage: 10 MG, 2X/DAY
     Route: 048
     Dates: start: 20100531, end: 20130828
  2. PREDNISONE [Concomitant]
     Indication: RHEUMATOID ARTHRITIS
     Dosage: UNK
     Dates: start: 200901
  3. ACETAMINOPHEN [Concomitant]
     Indication: FIBROMYALGIA
     Dosage: UNK
     Dates: start: 200909
  4. OMEPRAZOLE [Concomitant]
     Indication: GASTRITIS
     Dosage: UNK
     Dates: start: 20080301
  5. ALENDRONATE [Concomitant]
     Indication: OSTEOPOROSIS
     Dosage: UNK
     Dates: start: 20120306
  6. CALCIUM/VITAMIN D [Concomitant]
     Indication: OSTEOPOROSIS
     Dosage: UNK
     Dates: start: 20120306
  7. DOLAMIN FLEX [Concomitant]
     Indication: FIBROMYALGIA
     Dosage: UNK
     Dates: start: 20120821

REACTIONS (1)
  - Basal cell carcinoma [Recovered/Resolved]
